FAERS Safety Report 6494922-8 (Version None)
Quarter: 2009Q4

REPORT INFORMATION
  Report Type: 
  Country: None (occurrence: None)
  Receive Date: 20091214
  Receipt Date: 20090408
  Transmission Date: 20100525
  Serious: No
  Sender: FDA-Public Use
  Company Number: US-BRISTOL-MYERS SQUIBB COMPANY-14581276

PATIENT
  Age: 15 Year
  Sex: Male

DRUGS (3)
  1. ABILIFY [Suspect]
     Indication: IRRITABILITY
  2. ABILIFY [Suspect]
     Indication: ANXIETY
  3. RISPERDAL [Concomitant]

REACTIONS (1)
  - MUSCLE TWITCHING [None]
